FAERS Safety Report 18781924 (Version 1)
Quarter: 2021Q1

REPORT INFORMATION
  Report Type: Spontaneous
  Country: US (occurrence: US)
  Receive Date: 20210125
  Receipt Date: 20210125
  Transmission Date: 20210419
  Serious: No
  Sender: FDA-Public Use
  Company Number: US-ALLERGAN-2016731US

PATIENT
  Age: 50 Year
  Sex: Female

DRUGS (3)
  1. RESTASIS [Suspect]
     Active Substance: CYCLOSPORINE
     Indication: SCLERITIS
     Dosage: 2 GTT, BID
     Route: 047
     Dates: start: 20200101, end: 20200413
  2. NAPROXEN. [Concomitant]
     Active Substance: NAPROXEN
     Indication: EYE INFLAMMATION
     Dosage: UNK, BID
  3. VITAMINS [Concomitant]
     Active Substance: VITAMINS

REACTIONS (6)
  - Dry eye [Recovering/Resolving]
  - Off label use [Unknown]
  - Drug ineffective [Unknown]
  - Eye pain [Recovering/Resolving]
  - Eye irritation [Recovering/Resolving]
  - Photophobia [Recovering/Resolving]

NARRATIVE: CASE EVENT DATE: 20200101
